FAERS Safety Report 23566780 (Version 2)
Quarter: 2024Q1

REPORT INFORMATION
  Report Type: Report from Study
  Country: US (occurrence: US)
  Receive Date: 20240226
  Receipt Date: 20240326
  Transmission Date: 20240410
  Serious: Yes (Hospitalization, Disabling, Other)
  Sender: FDA-Public Use
  Company Number: US-BAYER-2023A184396

PATIENT
  Age: 64 Year
  Sex: Female

DRUGS (4)
  1. STIVARGA [Suspect]
     Active Substance: REGORAFENIB
     Indication: Colon cancer
     Dosage: 80 MG, QD (DAILY 3 WEEKS THEN 1 WEEK OFF)
     Route: 048
     Dates: start: 20231217
  2. STIVARGA [Suspect]
     Active Substance: REGORAFENIB
     Indication: Colon cancer
     Dosage: 80 MG, QD (DAILY 3 WEEKS THEN 1 WEEK OFF)
     Route: 048
  3. STIVARGA [Suspect]
     Active Substance: REGORAFENIB
     Indication: Colon cancer
     Dosage: 80 MG, QD (DAILY FOR 3 WEEKS ON AND 1 WEEK OFF )
     Route: 048
  4. STIVARGA [Suspect]
     Active Substance: REGORAFENIB
     Indication: Colon cancer
     Dosage: ALTERNATING 2 PILLS ONE AND 3 PILLS STARTING MONDAY
     Dates: start: 20240219

REACTIONS (12)
  - Upper gastrointestinal haemorrhage [Recovering/Resolving]
  - Duodenal ulcer [Recovering/Resolving]
  - Volume blood decreased [Recovering/Resolving]
  - Gait inability [Recovering/Resolving]
  - Sunburn [Not Recovered/Not Resolved]
  - Cutis laxa [Not Recovered/Not Resolved]
  - Dry skin [Recovering/Resolving]
  - Dysphonia [Recovering/Resolving]
  - Off label use [None]
  - Fatigue [Recovering/Resolving]
  - Skin exfoliation [Recovering/Resolving]
  - Hyperkeratosis [Recovering/Resolving]

NARRATIVE: CASE EVENT DATE: 20231217
